FAERS Safety Report 14773997 (Version 9)
Quarter: 2018Q4

REPORT INFORMATION
  Report Type: Report from Study
  Country: IT (occurrence: IT)
  Receive Date: 20180418
  Receipt Date: 20181214
  Transmission Date: 20190204
  Serious: Yes (Death, Other)
  Sender: FDA-Public Use
  Company Number: IT-AUROBINDO-AUR-APL-2018-020390

PATIENT
  Age: 63 Year
  Sex: Male
  Weight: 109 kg

DRUGS (15)
  1. CALCIUM [Interacting]
     Active Substance: CALCIUM
     Indication: PRODUCT USED FOR UNKNOWN INDICATION
     Dosage: UNK
     Route: 065
  2. PREGABALIN. [Suspect]
     Active Substance: PREGABALIN
     Indication: PRODUCT USED FOR UNKNOWN INDICATION
     Dosage: UNK
     Route: 065
  3. CLONIDINE. [Interacting]
     Active Substance: CLONIDINE
     Indication: PRODUCT USED FOR UNKNOWN INDICATION
     Dosage: UNK
     Route: 065
  4. SIMVASTATIN. [Suspect]
     Active Substance: SIMVASTATIN
     Indication: IMMUNISATION
     Dosage: UNK
     Route: 065
  5. FISH OIL [Interacting]
     Active Substance: FISH OIL
     Indication: PRODUCT USED FOR UNKNOWN INDICATION
     Dosage: UNK
     Route: 065
  6. TAMSULOSIN [Suspect]
     Active Substance: TAMSULOSIN
     Indication: PRODUCT USED FOR UNKNOWN INDICATION
     Dosage: UNK
     Route: 065
  7. TORASEMIDE [Interacting]
     Active Substance: TORSEMIDE
     Indication: PRODUCT USED FOR UNKNOWN INDICATION
     Dosage: UNK
     Route: 065
  8. QUINAPRIL. [Interacting]
     Active Substance: QUINAPRIL
     Indication: PRODUCT USED FOR UNKNOWN INDICATION
     Dosage: UNK
     Route: 065
  9. INFLUENZA VACCINE [Interacting]
     Active Substance: INFLUENZA VIRUS VACCINE
     Indication: IMMUNISATION
     Dosage: UNK
     Route: 065
  10. GEMFIBROZIL. [Interacting]
     Active Substance: GEMFIBROZIL
     Indication: PRODUCT USED FOR UNKNOWN INDICATION
     Dosage: UNK
     Route: 065
  11. VALSARTAN. [Interacting]
     Active Substance: VALSARTAN
     Indication: PRODUCT USED FOR UNKNOWN INDICATION
     Dosage: UNK
     Route: 065
  12. HYDROCHLOROTHIAZIDE. [Interacting]
     Active Substance: HYDROCHLOROTHIAZIDE
     Indication: PRODUCT USED FOR UNKNOWN INDICATION
     Dosage: UNK
     Route: 065
  13. ACETYLSALICYLIC ACID [Suspect]
     Active Substance: ASPIRIN
     Indication: PRODUCT USED FOR UNKNOWN INDICATION
     Dosage: UNK
     Route: 065
  14. PARICALCITOL. [Interacting]
     Active Substance: PARICALCITOL
     Indication: PRODUCT USED FOR UNKNOWN INDICATION
     Dosage: UNK
     Route: 065
  15. INSULIN [Interacting]
     Active Substance: INSULIN NOS
     Indication: PRODUCT USED FOR UNKNOWN INDICATION
     Dosage: UNK
     Route: 065

REACTIONS (19)
  - Nephropathy [Fatal]
  - Supraventricular tachycardia [Fatal]
  - Guillain-Barre syndrome [Fatal]
  - Mobility decreased [Fatal]
  - Drug interaction [Fatal]
  - Pain in extremity [Fatal]
  - Sepsis [Fatal]
  - Cardiac failure [Unknown]
  - Paralysis [Fatal]
  - Arrhythmia [Fatal]
  - Cardiopulmonary failure [Fatal]
  - Muscular weakness [Fatal]
  - Pneumonia [Fatal]
  - Renal impairment [Fatal]
  - Chromaturia [Fatal]
  - Death [Fatal]
  - Hypoaesthesia [Fatal]
  - Hypotonia [Fatal]
  - Rhabdomyolysis [Fatal]
